FAERS Safety Report 5157825-7 (Version None)
Quarter: 2006Q4

REPORT INFORMATION
  Report Type: 
  Country: None (occurrence: None)
  Receive Date: 20061120
  Receipt Date: 20061120
  Transmission Date: 20070319
  Serious: Yes (Other)
  Sender: FDA-Public Use
  Company Number: None

PATIENT
  Age: 32 Year
  Sex: Female
  Weight: 63.5036 kg

DRUGS (2)
  1. KENALOG-40 [Suspect]
     Indication: HAEMORRHOIDS
     Dosage: 1 CC ONCE IM
     Route: 030
     Dates: start: 20060514, end: 20060514
  2. .. [Concomitant]

REACTIONS (4)
  - ACNE [None]
  - INJECTION SITE ATROPHY [None]
  - MENORRHAGIA [None]
  - ULCER [None]
